FAERS Safety Report 8677640 (Version 2)
Quarter: 2013Q4

REPORT INFORMATION
  Report Type: Spontaneous
  Country: US (occurrence: US)
  Receive Date: 20120723
  Receipt Date: 20131031
  Transmission Date: 20140711
  Serious: No
  Sender: FDA-Public Use
  Company Number: US-009507513-2012SP026697

PATIENT
  Age: 39 Year
  Sex: Female

DRUGS (4)
  1. PEGINTRON [Suspect]
     Dosage: 0.5 ML, QW
     Dates: start: 201204
  2. PROZAC [Concomitant]
  3. OMEPRAZOLE [Concomitant]
  4. NAPROXEN [Concomitant]

REACTIONS (2)
  - Drug dose omission [Unknown]
  - Insomnia [Not Recovered/Not Resolved]
